FAERS Safety Report 4901187-4 (Version None)
Quarter: 2006Q1

REPORT INFORMATION
  Report Type: 
  Country: None (occurrence: None)
  Receive Date: 20060202
  Receipt Date: 20060125
  Transmission Date: 20060701
  Serious: Yes (Hospitalization)
  Sender: FDA-Public Use
  Company Number: 2006012686

PATIENT
  Age: 67 Year
  Sex: Female
  Weight: 68.0396 kg

DRUGS (8)
  1. GABAPENTIN [Suspect]
     Indication: NEURALGIA
     Dosage: 200 MG (100 MG, 2 IN 1 D), ORAL
     Route: 048
     Dates: start: 20050201, end: 20050501
  2. NEURONTIN [Suspect]
     Indication: NEURALGIA
     Dosage: 200 MG (100 MG, 2 IN 1 D), ORAL
     Route: 048
     Dates: start: 20011101
  3. LYRICA [Suspect]
     Indication: NEURALGIA
     Dosage: 50 MG (25 MG, 2 IN 1 D), ORAL
     Route: 048
     Dates: start: 20051101
  4. CALCIUM CITRATE (CALCIUM CITRATE) [Concomitant]
  5. VITAMINS (VITAMINS) [Concomitant]
  6. BENICAR HCT [Concomitant]
  7. MAGNESIUM (MAGNESIUM) [Concomitant]
  8. VITAMIN D [Concomitant]

REACTIONS (3)
  - DRUG INEFFECTIVE [None]
  - PHARMACEUTICAL PRODUCT COMPLAINT [None]
  - PROCEDURAL COMPLICATION [None]
